FAERS Safety Report 9933305 (Version 2)
Quarter: 2014Q1

REPORT INFORMATION
  Report Type: Spontaneous
  Country: US (occurrence: US)
  Receive Date: 20140228
  Receipt Date: 20140228
  Transmission Date: 20141002
  Serious: No
  Sender: FDA-Public Use
  Company Number: US-ABBVIE-13P-163-1170302-00

PATIENT
  Age: 41 Year
  Sex: Male
  Weight: 83.99 kg

DRUGS (6)
  1. ANDROGEL [Suspect]
     Indication: BLOOD TESTOSTERONE DECREASED
     Route: 061
     Dates: start: 201309
  2. NORVASC [Concomitant]
     Indication: HYPERTENSION
  3. CLONIDINE HCL [Concomitant]
     Indication: HYPERTENSION
  4. TOPROL [Concomitant]
     Indication: HYPERTENSION
  5. LAMICTAL [Concomitant]
     Indication: EPILEPSY
  6. XANAX [Concomitant]
     Indication: ANXIETY

REACTIONS (1)
  - Paraesthesia [Not Recovered/Not Resolved]
